FAERS Safety Report 6505565-1 (Version None)
Quarter: 2009Q4

REPORT INFORMATION
  Report Type: 
  Country: None (occurrence: None)
  Receive Date: 20091217
  Receipt Date: 20091217
  Transmission Date: 20100525
  Serious: Yes (Hospitalization)
  Sender: FDA-Public Use
  Company Number: None

PATIENT
  Age: 29 Year
  Sex: Male

DRUGS (2)
  1. DIVALPROEX SODIUM [Suspect]
     Indication: EPILEPSY
     Dosage: 1500MG BID PO
     Route: 048
     Dates: start: 20080801
  2. DILANTIN [Suspect]
     Indication: EPILEPSY
     Dosage: 100MG QID PO
     Route: 048

REACTIONS (2)
  - ANTICONVULSANT DRUG LEVEL INCREASED [None]
  - DRUG INTERACTION [None]
